FAERS Safety Report 9069606 (Version 1)
Quarter: 2013Q1

REPORT INFORMATION
  Report Type: Report from Study
  Country: US (occurrence: US)
  Receive Date: 20130131
  Receipt Date: 20130131
  Transmission Date: 20140127
  Serious: Yes (Other)
  Sender: FDA-Public Use
  Company Number: US-ABBOTT-12P-163-0933395-00

PATIENT
  Age: 57 None
  Sex: Male

DRUGS (5)
  1. HUMIRA 40 MG/0.8 ML PEN [Suspect]
     Indication: CROHN^S DISEASE
     Dates: start: 20120425, end: 201209
  2. HUMIRA 40 MG/0.8 ML PEN [Suspect]
     Dates: start: 201209
  3. ATENOLOL [Concomitant]
     Indication: HYPERTENSION
     Dosage: 100MG DAILY
  4. MERCAPTOPURINE [Concomitant]
     Indication: CROHN^S DISEASE
     Dosage: 75MG DAILY
  5. ALLEGRA [Concomitant]
     Indication: HYPERSENSITIVITY

REACTIONS (9)
  - Thrombosis [Not Recovered/Not Resolved]
  - Joint stiffness [Not Recovered/Not Resolved]
  - Arthralgia [Not Recovered/Not Resolved]
  - Back pain [Not Recovered/Not Resolved]
  - Mass [Not Recovered/Not Resolved]
  - Ligament sprain [Recovered/Resolved]
  - Drug ineffective [Recovering/Resolving]
  - Diarrhoea [Not Recovered/Not Resolved]
  - Poor quality drug administered [Unknown]
